FAERS Safety Report 6117560-5 (Version None)
Quarter: 2009Q1

REPORT INFORMATION
  Report Type: 
  Country: None (occurrence: None)
  Receive Date: 20090314
  Receipt Date: 20090120
  Transmission Date: 20090719
  Serious: No
  Sender: FDA-Public Use
  Company Number: US-ABBOTT-09P-163-0498920-00

PATIENT
  Sex: Female
  Weight: 81.72 kg

DRUGS (13)
  1. HUMIRA [Suspect]
     Indication: CROHN'S DISEASE
     Route: 058
     Dates: start: 20081119, end: 20090114
  2. NORTRIPTYLINE HCL [Concomitant]
     Indication: PAIN
  3. ZANAFLEX [Concomitant]
     Indication: MUSCLE SPASMS
  4. ZANAFLEX [Concomitant]
     Indication: MUSCLE RELAXANT THERAPY
  5. ZANAFLEX [Concomitant]
     Indication: PROPHYLAXIS
  6. FLEXERIL [Concomitant]
     Indication: MUSCLE RELAXANT THERAPY
  7. LYRICA [Concomitant]
     Indication: FIBROMYALGIA
  8. COLCHICINE [Concomitant]
     Indication: ARTHRALGIA
  9. ZYRTEC [Concomitant]
     Indication: HYPERSENSITIVITY
  10. FLONASE [Concomitant]
     Indication: HYPERSENSITIVITY
  11. PRILOSEC [Concomitant]
     Indication: EROSIVE OESOPHAGITIS
  12. FOSAMAX [Concomitant]
     Indication: OSTEOPOROSIS
  13. ZANTAC [Concomitant]
     Indication: GASTROOESOPHAGEAL REFLUX PROPHYLAXIS

REACTIONS (1)
  - PAIN [None]
